FAERS Safety Report 12212003 (Version 1)
Quarter: 2016Q1

REPORT INFORMATION
  Report Type: Spontaneous
  Country: DE (occurrence: DE)
  Receive Date: 20160325
  Receipt Date: 20160325
  Transmission Date: 20160526
  Serious: Yes (Hospitalization)
  Sender: FDA-Public Use
  Company Number: PHHY2016DE011918

PATIENT
  Sex: Female
  Weight: 82.2 kg

DRUGS (10)
  1. PETIBELLE [Concomitant]
     Active Substance: DROSPIRENONE\ETHINYL ESTRADIOL
     Indication: CONTRACEPTION
     Dosage: 1X1 DAILY
     Route: 048
     Dates: start: 2006, end: 201512
  2. CABERGOLINE. [Concomitant]
     Active Substance: CABERGOLINE
     Indication: PRODUCT USED FOR UNKNOWN INDICATION
     Dosage: 0.5 MG, 2X/WEEK
     Route: 048
  3. EFEROX [Concomitant]
     Active Substance: LEVOTHYROXINE SODIUM
     Indication: PRODUCT USED FOR UNKNOWN INDICATION
     Dosage: 125 MG, QD
     Route: 048
     Dates: start: 2010
  4. SIGNIFOR LAR [Suspect]
     Active Substance: PASIREOTIDE
     Indication: ACROMEGALY
     Dosage: 40 MG, QMO
     Route: 030
     Dates: start: 20150501
  5. ACETYLSALICYLIC ACID [Concomitant]
     Active Substance: ASPIRIN
     Indication: PRODUCT USED FOR UNKNOWN INDICATION
     Dosage: UNK UNK, QD
     Route: 048
  6. ALPRAZOLAM. [Concomitant]
     Active Substance: ALPRAZOLAM
     Indication: SLEEP DISORDER
     Dosage: 1 MG, UNK 0-0-2
     Route: 065
     Dates: start: 2011
  7. SIGNIFOR LAR [Suspect]
     Active Substance: PASIREOTIDE
     Dosage: 60 MG, QMO
     Route: 030
     Dates: end: 20151201
  8. SIMVASTATIN. [Concomitant]
     Active Substance: SIMVASTATIN
     Indication: PRODUCT USED FOR UNKNOWN INDICATION
     Dosage: 1/2 DAILY
     Route: 048
  9. SANDOSTATIN LAR DEPOT [Suspect]
     Active Substance: OCTREOTIDE ACETATE
     Indication: ACROMEGALY
     Route: 065
  10. METFORMIN-RATIOPHARM [Concomitant]
     Indication: PRODUCT USED FOR UNKNOWN INDICATION
     Dosage: UNK UNK, QD
     Route: 048

REACTIONS (13)
  - Thrombosis [Recovered/Resolved]
  - Arthropathy [Recovered/Resolved with Sequelae]
  - Soft tissue swelling [Recovered/Resolved with Sequelae]
  - Blood thyroid stimulating hormone decreased [Unknown]
  - Hepatic enzyme increased [Recovering/Resolving]
  - Gingivitis [Not Recovered/Not Resolved]
  - Dizziness [Recovered/Resolved]
  - C-reactive protein increased [Unknown]
  - Blood glucose increased [Recovering/Resolving]
  - Drug ineffective [Unknown]
  - Blood pressure diastolic increased [Unknown]
  - Blood calcitonin decreased [Unknown]
  - Fibrin D dimer increased [Unknown]

NARRATIVE: CASE EVENT DATE: 201505
